FAERS Safety Report 26006719 (Version 1)
Quarter: 2025Q4

REPORT INFORMATION
  Report Type: Report from Study
  Country: US (occurrence: US)
  Receive Date: 20251106
  Receipt Date: 20251106
  Transmission Date: 20260118
  Serious: Yes (Other)
  Sender: ALEXION PHARMACEUTICALS
  Company Number: US-AstraZeneca-CH-00984265A

PATIENT
  Sex: Female

DRUGS (17)
  1. OSIMERTINIB [Suspect]
     Active Substance: OSIMERTINIB
     Route: 065
  2. AMLODIPINE BESYLATE [Concomitant]
     Active Substance: AMLODIPINE BESYLATE
     Route: 065
  3. ASPIRIN [Concomitant]
     Active Substance: ASPIRIN
     Route: 065
  4. CHROMIUM PICOLINATE [Concomitant]
     Active Substance: CHROMIUM PICOLINATE
     Route: 065
  5. ELIQUIS [Concomitant]
     Active Substance: APIXABAN
     Route: 065
  6. HYDROCHLOROTHIAZIDE [Concomitant]
     Active Substance: HYDROCHLOROTHIAZIDE
     Route: 065
  7. METOPROLOL SUCCINATE [Concomitant]
     Active Substance: METOPROLOL SUCCINATE
     Route: 065
  8. PEPCID [Concomitant]
     Active Substance: FAMOTIDINE
     Route: 065
  9. VITAMIN D3 [Concomitant]
     Active Substance: CHOLECALCIFEROL
     Route: 065
  10. VITAMIN E [Concomitant]
     Active Substance: .ALPHA.-TOCOPHEROL
     Route: 065
  11. ZYRTEC [Concomitant]
     Active Substance: CETIRIZINE HYDROCHLORIDE
     Route: 065
  12. ZINC [Concomitant]
     Active Substance: ZINC
  13. FISH OIL [Concomitant]
     Active Substance: FISH OIL
  14. CINNAMON [Concomitant]
     Active Substance: CINNAMON
  15. MELATONIN [Concomitant]
     Active Substance: MELATONIN
  16. CALCIUM [Concomitant]
     Active Substance: CALCIUM
  17. IRON [Concomitant]
     Active Substance: IRON

REACTIONS (2)
  - Pleural effusion [Unknown]
  - Drug ineffective [Unknown]
